FAERS Safety Report 8532653-0 (Version None)
Quarter: 2012Q3

REPORT INFORMATION
  Report Type: 
  Country: None (occurrence: None)
  Receive Date: 20120724
  Receipt Date: 20120713
  Transmission Date: 20120928
  Serious: Yes (Other)
  Sender: FDA-Public Use
  Company Number: US-BAYER-2012-039628

PATIENT
  Age: 34 Year
  Sex: Female
  Weight: 65.76 kg

DRUGS (15)
  1. PROPRANOLOL [Concomitant]
     Indication: MIGRAINE
     Dosage: UNK
     Dates: start: 20070101
  2. DIETARY SUPPLEMENTS [Concomitant]
     Dosage: UNK
  3. YAZ [Suspect]
     Indication: PREMENSTRUAL SYNDROME
  4. BOTOX [Concomitant]
     Dosage: UNK
     Dates: start: 20070101, end: 20110101
  5. AMERGE [Concomitant]
     Indication: MIGRAINE
     Dosage: UNK
     Dates: start: 20070101, end: 20110101
  6. DEPAKOTE [Concomitant]
     Dosage: UNK
     Dates: start: 20070101, end: 20110101
  7. ASCORBIC ACID [Concomitant]
     Dosage: UNK
  8. PROZAC [Concomitant]
     Indication: DEPRESSION
     Dosage: UNK
     Dates: start: 20070101, end: 20110101
  9. YAZ [Suspect]
     Indication: CONTRACEPTION
  10. NORTRIPTYLINE HCL [Concomitant]
     Dosage: UNK
     Dates: start: 20070101, end: 20110101
  11. YAZ [Suspect]
     Indication: ACNE
     Dosage: UNK
     Dates: start: 20071222, end: 20080429
  12. INDERAL [Concomitant]
     Dosage: UNK
     Dates: start: 20070101, end: 20110101
  13. NAPROXEN SODIUM [Concomitant]
     Indication: ANALGESIC THERAPY
     Dosage: UNK
     Dates: start: 20070101
  14. TOPAMAX [Concomitant]
     Indication: MIGRAINE
     Dosage: UNK
     Dates: start: 20070101, end: 20110101
  15. HERBAL PREPARATION [Concomitant]
     Dosage: UNK

REACTIONS (5)
  - PAIN [None]
  - ANXIETY [None]
  - FEAR [None]
  - DEEP VEIN THROMBOSIS [None]
  - INJURY [None]
